FAERS Safety Report 24970684 (Version 1)
Quarter: 2025Q1

REPORT INFORMATION
  Report Type: Spontaneous
  Country: NL (occurrence: NL)
  Receive Date: 20250214
  Receipt Date: 20250214
  Transmission Date: 20250408
  Serious: Yes (Death)
  Sender: MYLAN
  Company Number: None

PATIENT
  Age: 78 Year
  Sex: Male
  Weight: 94 kg

DRUGS (12)
  1. EPLERENONE [Suspect]
     Active Substance: EPLERENONE
     Indication: Product used for unknown indication
     Route: 048
  2. EMPAGLIFLOZIN [Suspect]
     Active Substance: EMPAGLIFLOZIN
     Indication: Diabetes mellitus
     Dosage: 10 MILLIGRAM, QD (ONCE A DAY 1 PIECE)
     Route: 048
     Dates: start: 20230715, end: 20230723
  3. FUROSEMIDE [Suspect]
     Active Substance: FUROSEMIDE
     Indication: Product used for unknown indication
     Route: 048
  4. ACENOCOUMAROL [Concomitant]
     Active Substance: ACENOCOUMAROL
     Route: 048
  5. CLOPIDOGREL [Concomitant]
     Active Substance: CLOPIDOGREL BISULFATE
     Route: 048
  6. ROSUVASTATIN [Concomitant]
     Active Substance: ROSUVASTATIN
     Route: 048
  7. PERINDOPRIL ERBUMINE [Concomitant]
     Active Substance: PERINDOPRIL ERBUMINE
     Route: 048
  8. PANTOPRAZOLE [Concomitant]
     Active Substance: PANTOPRAZOLE
     Route: 048
  9. NITROGLYCERIN [Concomitant]
     Active Substance: NITROGLYCERIN
     Route: 060
  10. GLICLAZIDE [Concomitant]
     Active Substance: GLICLAZIDE
     Route: 048
  11. ISOSORBIDE MONONITRATE [Concomitant]
     Active Substance: ISOSORBIDE MONONITRATE
     Route: 048
  12. NIFEDIPINE [Concomitant]
     Active Substance: NIFEDIPINE
     Route: 048

REACTIONS (3)
  - Diabetic ketoacidosis [Fatal]
  - Lactic acidosis [Fatal]
  - Hypovolaemia [Fatal]
